FAERS Safety Report 12404119 (Version 1)
Quarter: 2016Q2

REPORT INFORMATION
  Report Type: Spontaneous
  Country: US (occurrence: US)
  Receive Date: 20160525
  Receipt Date: 20160525
  Transmission Date: 20160815
  Serious: No
  Sender: FDA-Public Use
  Company Number: US-SA-2016SA058184

PATIENT
  Age: 34 Year
  Sex: Female

DRUGS (2)
  1. ELOXATIN [Suspect]
     Active Substance: OXALIPLATIN
     Indication: COLON CANCER STAGE III
     Route: 065
     Dates: start: 20160304
  2. ELOXATIN [Suspect]
     Active Substance: OXALIPLATIN
     Indication: COLON CANCER STAGE III
     Route: 065
     Dates: start: 20160126

REACTIONS (1)
  - Drug dose omission [Unknown]

NARRATIVE: CASE EVENT DATE: 20160223
